FAERS Safety Report 5288528-6 (Version None)
Quarter: 2007Q2

REPORT INFORMATION
  Report Type: 
  Country: None (occurrence: None)
  Receive Date: 20070405
  Receipt Date: 20070213
  Transmission Date: 20071010
  Serious: No
  Sender: FDA-Public Use
  Company Number: US-JNJFOC-20070203597

PATIENT
  Sex: Male

DRUGS (10)
  1. INVEGA [Suspect]
     Indication: SCHIZOPHRENIA
     Route: 048
  2. LORAZEPAM [Concomitant]
     Route: 048
  3. BACLOFEN [Concomitant]
     Route: 048
  4. MAXZIDE [Concomitant]
     Route: 048
  5. GABAPENTIN [Concomitant]
     Route: 048
  6. METFORMIN HCL [Concomitant]
  7. VYTORIN [Concomitant]
  8. TRIHEXYPHENIDYL HCL [Concomitant]
  9. VICON FORTE [Concomitant]
  10. ACETAMINOPHEN [Concomitant]

REACTIONS (1)
  - RASH [None]
